FAERS Safety Report 17050665 (Version 1)
Quarter: 2019Q4

REPORT INFORMATION
  Report Type: Report from Study
  Country: None (occurrence: US)
  Receive Date: 20191119
  Receipt Date: 20191119
  Transmission Date: 20200122
  Serious: Yes (Hospitalization)
  Sender: FDA-Public Use
  Company Number: US-ABBVIE-19K-163-2920488-00

PATIENT
  Sex: Female
  Weight: 95.79 kg

DRUGS (3)
  1. HUMIRA [Suspect]
     Active Substance: ADALIMUMAB
     Indication: CROHN^S DISEASE
     Dosage: DAY 1
     Route: 058
     Dates: start: 2019, end: 2019
  2. HUMIRA [Suspect]
     Active Substance: ADALIMUMAB
     Dosage: DAY 15
     Route: 058
     Dates: start: 2019, end: 2019
  3. HUMIRA [Suspect]
     Active Substance: ADALIMUMAB
     Dosage: MAINTENANCE DOSE FROM DAY 29
     Route: 058
     Dates: start: 201906, end: 201909

REACTIONS (5)
  - Chills [Unknown]
  - Hyperhidrosis [Unknown]
  - Pyrexia [Recovered/Resolved]
  - Pancreatitis [Recovering/Resolving]
  - Staphylococcal sepsis [Unknown]

NARRATIVE: CASE EVENT DATE: 2019
